FAERS Safety Report 19923833 (Version 3)
Quarter: 2024Q3

REPORT INFORMATION
  Report Type: Report from Study
  Country: US (occurrence: US)
  Receive Date: 20211005
  Receipt Date: 20240925
  Transmission Date: 20241017
  Serious: No
  Sender: GLAXOSMITHKLINE
  Company Number: US-GLAXOSMITHKLINE-US2021AMR206073

PATIENT
  Sex: Female

DRUGS (2)
  1. NIRAPARIB [Suspect]
     Active Substance: NIRAPARIB
     Indication: Ovarian cancer
     Dosage: 2 DF, QD (200 MG QD)
     Dates: start: 202106
  2. NIRAPARIB [Suspect]
     Active Substance: NIRAPARIB
     Dosage: 1 DF, QD (100 MG QD)
     Dates: start: 202107

REACTIONS (3)
  - Blood calcium increased [Unknown]
  - Haemoglobin decreased [Recovered/Resolved]
  - Constipation [Recovered/Resolved]
